FAERS Safety Report 6642694-6 (Version None)
Quarter: 2010Q1

REPORT INFORMATION
  Report Type: 
  Country: None (occurrence: None)
  Receive Date: 20100316
  Receipt Date: 20100302
  Transmission Date: 20100710
  Serious: Yes (Hospitalization)
  Sender: FDA-Public Use
  Company Number: 2009EU004070

PATIENT
  Sex: Female
  Weight: 96 kg

DRUGS (1)
  1. TACROLIMUS [Suspect]
     Indication: RENAL TRANSPLANT
     Dosage: 16 MG, /D, ORAL
     Route: 048
     Dates: start: 20081007

REACTIONS (1)
  - LYMPHOCELE [None]
